FAERS Safety Report 7549963 (Version 17)
Quarter: 2013Q3

REPORT INFORMATION
  Report Type: Spontaneous
  Country: US (occurrence: US)
  Receive Date: 20100823
  Receipt Date: 20130826
  Transmission Date: 20140515
  Serious: Yes (Death, Disabling)
  Sender: FDA-Public Use
  Company Number: US-BAYER-201030618NA

PATIENT
  Age: 52 Year
  Sex: Female
  Weight: 149 kg

DRUGS (21)
  1. MAGNEVIST [Suspect]
     Indication: ANGIOGRAM
     Dosage: UNK UNK, ONCE
     Dates: start: 20030913, end: 20030913
  2. PROHANCE [GADOTERIDOL] [Suspect]
     Indication: ANGIOGRAM
     Dates: start: 20070511, end: 20070511
  3. PROHANCE [GADOTERIDOL] [Suspect]
     Indication: NUCLEAR MAGNETIC RESONANCE IMAGING
     Dates: start: 20071109, end: 20071109
  4. MULTIHANCE [GADOBENIC ACID MEGLUMINE] [Suspect]
     Indication: NUCLEAR MAGNETIC RESONANCE IMAGING
     Route: 042
     Dates: start: 20080304, end: 20080304
  5. COREG [Concomitant]
     Indication: HYPERTENSION
     Dosage: 3.125 MG DAILY
     Route: 048
  6. EPOGEN [Concomitant]
     Dosage: UNK UNK, TIW
     Route: 058
  7. PROCRIT [Concomitant]
     Dosage: 10,000 UNITS WEEKLY
     Route: 058
  8. AMITRIPTYLINE [Concomitant]
     Dosage: 25 MG, HS
     Route: 048
  9. ASPIRIN [Concomitant]
     Dosage: 81 MG DAILY
     Route: 048
  10. PHOSLO [Concomitant]
     Dosage: 667 MG 2 TABLETS THREE TIMES A DAY WITH MEALS
     Route: 048
  11. RENAGEL [SEVELAMER] [Concomitant]
     Dosage: 800 MG 3 TABLETS THREE TIMES A DAY WITH MEALS
     Route: 048
  12. SENSIPAR [Concomitant]
     Dosage: 30 MG DAILY
     Route: 048
  13. FOSRENOL [Concomitant]
     Dosage: 500 MG DAILY
     Route: 048
  14. LANTUS [Concomitant]
  15. HUMALOG [Concomitant]
  16. CLONIDINE [Concomitant]
     Dosage: 0.1 MG, BID
     Route: 048
  17. NORVASC [Concomitant]
     Dosage: 5 MG DAILY
     Route: 048
  18. ALTACE [Concomitant]
     Dosage: 10 MG DAILY
     Route: 048
  19. DIOVAN [Concomitant]
     Dosage: 160 MG DAILY
     Route: 048
  20. ROCALTROL [Concomitant]
     Dosage: DAILY
     Route: 048
  21. IRON [Concomitant]
     Dosage: 350 MG DAILY
     Route: 048

REACTIONS (39)
  - Nephrogenic systemic fibrosis [Fatal]
  - Pain [Fatal]
  - General physical health deterioration [Fatal]
  - Deformity [Fatal]
  - Scar [Fatal]
  - Mobility decreased [Fatal]
  - Muscular weakness [Fatal]
  - Skin hypertrophy [Fatal]
  - Skin induration [Fatal]
  - Pigmentation disorder [Fatal]
  - Joint range of motion decreased [Fatal]
  - Joint contracture [Fatal]
  - Joint stiffness [Fatal]
  - Musculoskeletal stiffness [Fatal]
  - Skin ulcer [Fatal]
  - Skin exfoliation [Fatal]
  - Abasia [Fatal]
  - Excoriation [Fatal]
  - Scleroderma [Fatal]
  - Necrobiosis lipoidica diabeticorum [Fatal]
  - Skin tightness [Fatal]
  - Skin discolouration [Fatal]
  - Musculoskeletal stiffness [Fatal]
  - Joint stiffness [Fatal]
  - Joint contracture [Fatal]
  - Mobility decreased [Fatal]
  - Pain in extremity [Fatal]
  - Skin disorder [Fatal]
  - Skin fibrosis [Fatal]
  - Extremity contracture [Fatal]
  - Muscle contracture [Fatal]
  - Emotional distress [None]
  - Erythema [Fatal]
  - Oedema peripheral [Fatal]
  - Skin mass [Fatal]
  - Depression [None]
  - Depressed mood [None]
  - Stress [None]
  - Pain of skin [Fatal]
